FAERS Safety Report 5814176-2 (Version None)
Quarter: 2008Q3

REPORT INFORMATION
  Report Type: 
  Country: None (occurrence: None)
  Receive Date: 20080717
  Receipt Date: 20080709
  Transmission Date: 20090109
  Serious: Yes (Hospitalization)
  Sender: FDA-Public Use
  Company Number: JP-MERCK-0806USA03000

PATIENT
  Age: 92 Year
  Sex: Female
  Weight: 46 kg

DRUGS (4)
  1. HYZAAR [Suspect]
     Indication: HYPERTENSION
     Route: 048
     Dates: start: 20080425, end: 20080529
  2. BENIDIPINE HYDROCHLORIDE [Concomitant]
     Indication: HYPERTENSION
     Route: 048
     Dates: start: 20061016, end: 20080529
  3. THEO-DUR [Suspect]
     Indication: ASTHMA
     Route: 048
     Dates: start: 19960620, end: 20080529
  4. PRAVASTATIN [Concomitant]
     Indication: HYPERTENSION
     Route: 048
     Dates: start: 20061016, end: 20080529

REACTIONS (4)
  - BRONCHITIS [None]
  - DEHYDRATION [None]
  - HYPOKALAEMIA [None]
  - RESPIRATORY FAILURE [None]
